FAERS Safety Report 9187101 (Version 2)
Quarter: 2013Q2

REPORT INFORMATION
  Report Type: Report from Study
  Country: GB (occurrence: GB)
  Receive Date: 20130325
  Receipt Date: 20130424
  Transmission Date: 20140414
  Serious: Yes (Hospitalization)
  Sender: FDA-Public Use
  Company Number: GB-ROCHE-1204058

PATIENT
  Age: 51 Year
  Sex: Female
  Weight: 56.75 kg

DRUGS (9)
  1. TRASTUZUMAB EMTANSINE [Suspect]
     Indication: BREAST CANCER
     Dosage: LAST DOSE PRIOR TO SAE: 01/MAR/2013, AT A DOSE OF 210 MG
     Route: 042
     Dates: start: 20120531
  2. PARACETAMOL [Concomitant]
     Indication: PYREXIA
     Route: 065
     Dates: start: 20120531
  3. CALAMINE [Concomitant]
     Indication: PRURITUS
     Route: 065
     Dates: start: 20120720
  4. NYSTATIN [Concomitant]
     Route: 065
     Dates: start: 20120620
  5. CAPHOSOL [Concomitant]
     Route: 065
     Dates: start: 20120620
  6. METOCLOPRAMIDE [Concomitant]
     Indication: NAUSEA
     Route: 065
     Dates: start: 20120531
  7. OLBAS OIL [Concomitant]
     Indication: NASAL CONGESTION
     Route: 065
     Dates: start: 20121222
  8. FLUCONAZOLE [Concomitant]
     Indication: DRY MOUTH
     Route: 065
     Dates: start: 20120807
  9. E45 ITCH RELIEF [Concomitant]
     Indication: PRURITUS
     Route: 065
     Dates: start: 20120720

REACTIONS (1)
  - Upper respiratory tract infection [Recovered/Resolved]
